FAERS Safety Report 7806384-6 (Version None)
Quarter: 2011Q4

REPORT INFORMATION
  Report Type: 
  Country: None (occurrence: None)
  Receive Date: 20111011
  Receipt Date: 20111004
  Transmission Date: 20120403
  Serious: Yes (Death, Other)
  Sender: FDA-Public Use
  Company Number: JP-JNJFOC-20110800081

PATIENT
  Sex: Female
  Weight: 57 kg

DRUGS (40)
  1. DEXAMETHASONE SODIUM PHOSPHATE [Concomitant]
     Indication: PROPHYLAXIS
     Route: 042
     Dates: start: 20091216, end: 20091216
  2. KYTRIL [Concomitant]
     Indication: PROPHYLAXIS
     Route: 042
  3. KENACORT-A OPHTHALMIC OINTMENT [Concomitant]
     Route: 033
     Dates: start: 20091120, end: 20091120
  4. HEPARIN [Concomitant]
     Route: 061
     Dates: start: 20091216, end: 20091216
  5. DEXTROMETHORPHAN HYDROBROMIDE [Concomitant]
     Route: 048
     Dates: start: 20091219, end: 20091223
  6. TPN ELECTROLYTES IN PLASTIC CONTAINER [Concomitant]
     Indication: PROPHYLAXIS
     Route: 041
     Dates: start: 20091230, end: 20100103
  7. UNASYN [Concomitant]
     Route: 042
     Dates: start: 20091222, end: 20091224
  8. DEPAKENE [Concomitant]
     Route: 048
     Dates: end: 20100105
  9. CISPLATIN [Concomitant]
     Route: 042
     Dates: start: 20091224, end: 20091224
  10. MORPHINE HCL ELIXIR [Concomitant]
     Indication: PROPHYLAXIS
     Route: 042
     Dates: start: 20100103, end: 20100105
  11. POTASSIUM CHLORIDE [Concomitant]
     Route: 042
     Dates: start: 20091229, end: 20100109
  12. UNKNOWN MEDICATION [Concomitant]
     Route: 058
     Dates: start: 20091224, end: 20091230
  13. LEUKOPROL [Concomitant]
     Dosage: 8 MIU
     Route: 041
     Dates: start: 20091217, end: 20091222
  14. MAGMITT [Concomitant]
     Route: 048
     Dates: end: 20091216
  15. LEVOFLOXACIN [Concomitant]
     Route: 048
     Dates: start: 20091221, end: 20091225
  16. CODEINE PHOSPHATE [Concomitant]
     Dosage: FINR GRAIN
     Route: 048
     Dates: start: 20091221, end: 20091225
  17. LOXONIN [Concomitant]
     Route: 048
     Dates: start: 20091222, end: 20091230
  18. M.V.I. [Concomitant]
     Route: 041
     Dates: start: 20100102, end: 20100105
  19. LAC-B [Concomitant]
     Indication: PROPHYLAXIS
     Route: 048
     Dates: end: 20091216
  20. PRIMPERAN TAB [Concomitant]
     Route: 042
     Dates: start: 20091222, end: 20100105
  21. HOKUNALIN [Concomitant]
     Route: 062
     Dates: start: 20091221, end: 20100105
  22. HICORT [Concomitant]
     Route: 065
     Dates: start: 20091230, end: 20100105
  23. DOXORUBICIN HCL [Suspect]
     Indication: OVARIAN CANCER RECURRENT
     Dosage: CYCLE 2
     Route: 042
     Dates: start: 20091217, end: 20091217
  24. JUZEN-TAIHO-TO [Concomitant]
     Indication: PROPHYLAXIS
     Route: 048
     Dates: end: 20091217
  25. FUTHAN [Concomitant]
     Route: 042
     Dates: start: 20091229, end: 20100105
  26. CIPROFLOXACIN HYDROCHLORIDE [Concomitant]
     Route: 042
     Dates: start: 20091230, end: 20100105
  27. MEROPENEM HYDRATE [Concomitant]
     Route: 041
     Dates: start: 20051225, end: 20100105
  28. CEPHARANTHINE [Concomitant]
     Indication: PROPHYLAXIS
     Route: 048
     Dates: end: 20091216
  29. ZANTAC [Concomitant]
     Indication: PROPHYLAXIS
     Route: 042
     Dates: end: 20091119
  30. ONDANSETRON [Concomitant]
     Indication: PROPHYLAXIS
     Route: 042
     Dates: start: 20091119, end: 20091120
  31. ALBUMIN (HUMAN) [Concomitant]
     Route: 042
     Dates: start: 20091121, end: 20091122
  32. IMMUNE GLOBULIN INTRAVENOUS (HUMAN) [Concomitant]
     Route: 042
     Dates: start: 20091225, end: 20100103
  33. HICALIQ [Concomitant]
     Route: 041
     Dates: start: 20100102, end: 20100105
  34. DOXORUBICIN HCL [Suspect]
     Dosage: CYCLE 1
     Route: 042
     Dates: start: 20091118, end: 20091118
  35. UNASYN [Concomitant]
     Route: 042
     Dates: start: 20091221, end: 20091221
  36. VITAMEDIN [Concomitant]
     Indication: PROPHYLAXIS
     Route: 042
     Dates: start: 20091222, end: 20100103
  37. MUCOSOLVAN [Concomitant]
     Route: 048
     Dates: start: 20091224, end: 20091230
  38. FUNGIZONE [Concomitant]
     Route: 042
     Dates: start: 20091228, end: 20100105
  39. AZUNOL [Concomitant]
     Route: 061
     Dates: start: 20091231, end: 20091231
  40. HUMULIN R [Concomitant]
     Dosage: 10 (DEGREE OF FREEDOM)
     Route: 058
     Dates: start: 20100103, end: 20100105

REACTIONS (4)
  - NEUTROPHIL COUNT DECREASED [None]
  - PLATELET COUNT DECREASED [None]
  - PNEUMONIA [None]
  - WHITE BLOOD CELL COUNT DECREASED [None]
